FAERS Safety Report 14107320 (Version 1)
Quarter: 2017Q4

REPORT INFORMATION
  Report Type: Spontaneous
  Country: US (occurrence: None)
  Receive Date: 20171018
  Receipt Date: 20171018
  Transmission Date: 20180321
  Serious: No
  Sender: FDA-Public Use
  Company Number: None

PATIENT
  Age: 61 Year
  Sex: Female

DRUGS (6)
  1. PROCHLORPER [Concomitant]
  2. FORTEO [Concomitant]
     Active Substance: TERIPARATIDE
  3. FELODIPINE. [Concomitant]
     Active Substance: FELODIPINE
  4. ZOMIG [Concomitant]
     Active Substance: ZOLMITRIPTAN
  5. OCALIVA [Suspect]
     Active Substance: OBETICHOLIC ACID
     Indication: BILIARY CIRRHOSIS PRIMARY
     Route: 048
     Dates: start: 20170622
  6. URZODIOL [Concomitant]

REACTIONS (1)
  - Anaemia [None]
